FAERS Safety Report 9228832 (Version 1)
Quarter: 2013Q2

REPORT INFORMATION
  Report Type: Spontaneous
  Country: GB (occurrence: GB)
  Receive Date: 20130412
  Receipt Date: 20130412
  Transmission Date: 20140414
  Serious: Yes (Other)
  Sender: FDA-Public Use
  Company Number: GB-CELGENEUS-167-50794-13040224

PATIENT
  Sex: 0

DRUGS (8)
  1. VIDAZA [Suspect]
     Indication: ACUTE MYELOID LEUKAEMIA
     Dosage: 75 MILLIGRAM/SQ. METER
     Route: 065
  2. VIDAZA [Suspect]
     Indication: MYELODYSPLASTIC SYNDROME
  3. VIDAZA [Suspect]
     Indication: REFRACTORY ANAEMIA WITH AN EXCESS OF BLASTS
  4. VIDAZA [Suspect]
     Indication: PLASMA CELL LEUKAEMIA
  5. DECITABINE [Concomitant]
     Indication: ACUTE MYELOID LEUKAEMIA
     Dosage: 20 MILLIGRAM/SQ. METER
     Route: 065
  6. DECITABINE [Concomitant]
     Indication: MYELODYSPLASTIC SYNDROME
  7. DECITABINE [Concomitant]
     Indication: REFRACTORY ANAEMIA WITH AN EXCESS OF BLASTS
  8. DECITABINE [Concomitant]
     Indication: PLASMA CELL LEUKAEMIA

REACTIONS (3)
  - Graft versus host disease [Unknown]
  - Disease progression [Unknown]
  - No therapeutic response [Unknown]
